FAERS Safety Report 14024319 (Version 4)
Quarter: 2017Q4

REPORT INFORMATION
  Report Type: Spontaneous
  Country: CA (occurrence: CA)
  Receive Date: 20170929
  Receipt Date: 20171215
  Transmission Date: 20180321
  Serious: Yes (Other)
  Sender: FDA-Public Use
  Company Number: CA-CELLTRION HEALTHCARE JAPAN K.K.-2017CA011633

PATIENT

DRUGS (7)
  1. ASACOL [Concomitant]
     Active Substance: MESALAMINE
     Dosage: 3200 MG, DAILY
     Route: 048
     Dates: start: 20150728
  2. INFLECTRA [Suspect]
     Active Substance: INFLIXIMAB-DYYB
     Dosage: 470 MG, CYCLIC, (EVERY 0,2,6 WEEKS, THEN EVERY 8 WEEK
     Route: 042
     Dates: start: 20171206
  3. IMURAN [Concomitant]
     Active Substance: AZATHIOPRINE
     Dosage: 150 MG, DAILY
     Route: 048
     Dates: start: 20161202
  4. MULTI VITAMIN + MINERAL [Concomitant]
     Active Substance: MINERALS\VITAMINS
     Dosage: UNK
  5. VITAMIN D                          /00107901/ [Concomitant]
     Active Substance: ERGOCALCIFEROL
     Dosage: UNK
  6. INFLECTRA [Suspect]
     Active Substance: INFLIXIMAB-DYYB
     Indication: CROHN^S DISEASE
     Dosage: 470 MG, CYCLIC, (EVERY 0,2,6 WEEKS, THEN EVERY 8 WEEK
     Route: 042
     Dates: start: 20170425, end: 20170927
  7. FERROUS SULFATE. [Concomitant]
     Active Substance: FERROUS SULFATE
     Dosage: 300 MG, BID
     Route: 048
     Dates: start: 20160527

REACTIONS (4)
  - Ligament sprain [Unknown]
  - Lower respiratory tract infection [Recovering/Resolving]
  - Streptococcal infection [Recovering/Resolving]
  - Fall [Unknown]

NARRATIVE: CASE EVENT DATE: 20170826
